FAERS Safety Report 9436877 (Version 1)
Quarter: 2013Q3

REPORT INFORMATION
  Report Type: Spontaneous
  Country: US (occurrence: US)
  Receive Date: 20130802
  Receipt Date: 20130802
  Transmission Date: 20140515
  Serious: Yes (Hospitalization)
  Sender: FDA-Public Use
  Company Number: US-JNJFOC-20130715783

PATIENT
  Age: 50 Year
  Sex: Female
  Weight: 127.8 kg

DRUGS (3)
  1. ELMIRON [Suspect]
     Indication: CYSTITIS
     Route: 048
  2. NORVASC [Concomitant]
     Indication: HYPERTENSION
     Route: 065
  3. LORATADINE [Concomitant]
     Indication: MULTIPLE ALLERGIES
     Route: 065

REACTIONS (3)
  - Obesity [Not Recovered/Not Resolved]
  - Nausea [Not Recovered/Not Resolved]
  - Wrong technique in drug usage process [Not Recovered/Not Resolved]
